FAERS Safety Report 20373255 (Version 1)
Quarter: 2022Q1

REPORT INFORMATION
  Report Type: Spontaneous
  Country: US (occurrence: US)
  Receive Date: 20220125
  Receipt Date: 20220125
  Transmission Date: 20220424
  Serious: Yes (Other)
  Sender: FDA-Public Use
  Company Number: US-drreddys-SPO/USA/22/0145947

PATIENT
  Age: 17 Year
  Sex: Female

DRUGS (2)
  1. ACCUTANE [Suspect]
     Active Substance: ISOTRETINOIN
     Indication: Product used for unknown indication
     Dosage: RMA ISSUE DATE:26 OCTOBER 2021 01:42:46 PM, 25 AUGUST 2021 06:10:10 PM, 22 JULY 2021 12:23:22 PM
     Dates: start: 20210601
  2. ACCUTANE [Suspect]
     Active Substance: ISOTRETINOIN
     Dosage: RMA ISSUE DATE :01 JULY 2021 01:28:22 PM
     Dates: end: 20211119

REACTIONS (1)
  - Exposure during pregnancy [Unknown]
